FAERS Safety Report 15597268 (Version 1)
Quarter: 2018Q4

REPORT INFORMATION
  Report Type: Spontaneous
  Country: US (occurrence: US)
  Receive Date: 20181108
  Receipt Date: 20181108
  Transmission Date: 20190205
  Serious: Yes (Other)
  Sender: FDA-Public Use
  Company Number: PHEH2018US046165

PATIENT

DRUGS (1)
  1. SANDOSTATIN LAR DEPOT [Suspect]
     Active Substance: OCTREOTIDE ACETATE
     Indication: PRODUCT USED FOR UNKNOWN INDICATION
     Dosage: 40 MG, Q2W
     Route: 065

REACTIONS (3)
  - Neoplasm progression [Not Recovered/Not Resolved]
  - Inappropriate schedule of product administration [Unknown]
  - Carcinoid crisis [Not Recovered/Not Resolved]
